FAERS Safety Report 5843239-0 (Version None)
Quarter: 2008Q3

REPORT INFORMATION
  Report Type: 
  Country: None (occurrence: None)
  Receive Date: 20080813
  Receipt Date: 20080805
  Transmission Date: 20090109
  Serious: Yes (Hospitalization, Other)
  Sender: FDA-Public Use
  Company Number: PHBS2008SG05284

PATIENT
  Age: 31 Year
  Sex: Female

DRUGS (5)
  1. SYNTOCINON [Suspect]
     Route: 042
  2. DURATOCIN [Concomitant]
     Route: 030
  3. BLOOD AND RELATED PRODUCTS [Concomitant]
  4. METHOTREXATE [Concomitant]
     Route: 030
  5. ANTIBIOTICS [Concomitant]

REACTIONS (3)
  - ESCHERICHIA INFECTION [None]
  - SEPSIS [None]
  - VAGINAL HAEMORRHAGE [None]
